FAERS Safety Report 7234539-0 (Version None)
Quarter: 2011Q1

REPORT INFORMATION
  Report Type: 
  Country: None (occurrence: None)
  Receive Date: 20110119
  Receipt Date: 20110113
  Transmission Date: 20110831
  Serious: Yes (Hospitalization, Other)
  Sender: FDA-Public Use
  Company Number: US-AMGEN-USASP2011002437

PATIENT

DRUGS (1)
  1. ENBREL [Suspect]
     Indication: RHEUMATOID ARTHRITIS
     Dosage: 50 MG, QWK
     Dates: start: 20051018

REACTIONS (6)
  - PANCREATITIS [None]
  - LIVER ABSCESS [None]
  - CHOLECYSTECTOMY [None]
  - PRURITUS [None]
  - SKIN EXFOLIATION [None]
  - DRY SKIN [None]
